FAERS Safety Report 7179386-3 (Version None)
Quarter: 2010Q4

REPORT INFORMATION
  Report Type: 
  Country: None (occurrence: None)
  Receive Date: 20101208
  Receipt Date: 20101126
  Transmission Date: 20110411
  Serious: Yes (Death)
  Sender: FDA-Public Use
  Company Number: URSO-2010-147

PATIENT
  Age: 78 Year
  Sex: Female

DRUGS (5)
  1. URSODEOXYCHOLIC ACID [Suspect]
     Dosage: 300 MG, ORAL
     Route: 048
  2. BENET (SODIUM RISEDRONAE HYDRATE) [Suspect]
     Dosage: 2.5 MG, ORAL
     Route: 048
  3. CRESTOR [Suspect]
     Dosage: 2.5 MG, ORAL
     Route: 048
  4. MOBIC [Suspect]
     Dosage: 5 MG, ORAL
     Route: 048
  5. ANPLAG (SARPOGRELATE HYDROCHLORIDE) [Concomitant]

REACTIONS (4)
  - DEPRESSED LEVEL OF CONSCIOUSNESS [None]
  - HAEMATEMESIS [None]
  - HEPATIC CIRRHOSIS [None]
  - OESOPHAGEAL VARICES HAEMORRHAGE [None]
